FAERS Safety Report 9414466 (Version 1)
Quarter: 2013Q3

REPORT INFORMATION
  Report Type: Spontaneous
  Country: DK (occurrence: DK)
  Receive Date: 20130723
  Receipt Date: 20130723
  Transmission Date: 20140515
  Serious: Yes (Hospitalization)
  Sender: FDA-Public Use
  Company Number: DK-AMGEN-DNKSP2013050661

PATIENT
  Age: 84 Year
  Sex: 0

DRUGS (1)
  1. PROLIA [Suspect]
     Indication: OSTEOPOROSIS
     Dosage: 60 MG, Q6MO
     Route: 058
     Dates: start: 20110115

REACTIONS (4)
  - Rash pruritic [Recovering/Resolving]
  - Oedema peripheral [Unknown]
  - Erythema [Recovering/Resolving]
  - Pain in extremity [Unknown]
